FAERS Safety Report 10628288 (Version 2)
Quarter: 2014Q4

REPORT INFORMATION
  Report Type: Spontaneous
  Country: US (occurrence: US)
  Receive Date: 20141205
  Receipt Date: 20141205
  Transmission Date: 20150529
  Serious: No
  Sender: FDA-Public Use
  Company Number: US-BRISTOL-MYERS SQUIBB COMPANY-21625900

PATIENT
  Age: 76 Year
  Sex: Female
  Weight: 71.7 kg

DRUGS (4)
  1. COUMADIN [Suspect]
     Active Substance: WARFARIN SODIUM
     Route: 065
  2. OXYGEN. [Concomitant]
     Active Substance: OXYGEN
  3. TREPROSTINIL [Suspect]
     Active Substance: TREPROSTINIL
     Indication: PULMONARY ARTERIAL HYPERTENSION
     Dosage: DOSE: 18-54 MICROGRAMS,?STR:INHALATION GAS, 0.6MG/ML
     Dates: start: 20140923
  4. ASPIRIN. [Concomitant]
     Active Substance: ASPIRIN

REACTIONS (3)
  - Epistaxis [Not Recovered/Not Resolved]
  - Alopecia [Unknown]
  - Nasal dryness [Unknown]

NARRATIVE: CASE EVENT DATE: 2014
